FAERS Safety Report 6980415-8 (Version None)
Quarter: 2010Q3

REPORT INFORMATION
  Report Type: 
  Country: None (occurrence: None)
  Receive Date: 20100914
  Receipt Date: 20100830
  Transmission Date: 20110219
  Serious: No
  Sender: FDA-Public Use
  Company Number: US-ABBOTT-10P-163-0666735-00

PATIENT
  Sex: Male
  Weight: 47.67 kg

DRUGS (4)
  1. DEPAKOTE [Suspect]
     Indication: PRODUCT USED FOR UNKNOWN INDICATION
     Dates: start: 20090901, end: 20091001
  2. DEPAKOTE [Suspect]
     Dates: start: 20091101, end: 20100101
  3. DEPAKOTE [Suspect]
     Dates: start: 20100601
  4. TENEX [Concomitant]
     Indication: PRODUCT USED FOR UNKNOWN INDICATION

REACTIONS (1)
  - ALOPECIA [None]
